FAERS Safety Report 4465879-6 (Version None)
Quarter: 2004Q4

REPORT INFORMATION
  Report Type: 
  Country: None (occurrence: None)
  Receive Date: 20041005
  Receipt Date: 20040921
  Transmission Date: 20050328
  Serious: Yes (Death, Hospitalization)
  Sender: FDA-Public Use
  Company Number: 200417198US

PATIENT
  Age: 62 Year
  Sex: Male
  Weight: 95 kg

DRUGS (7)
  1. TAXOTERE [Suspect]
     Indication: NON-SMALL CELL LUNG CANCER
     Route: 042
     Dates: start: 20040728, end: 20040818
  2. DEXAMETHASONE [Suspect]
     Indication: NON-SMALL CELL LUNG CANCER
     Route: 048
     Dates: end: 20040818
  3. RADIATION THERAPY [Suspect]
     Indication: NON-SMALL CELL LUNG CANCER
     Dosage: DOSE: 61 GY
  4. OXYCODONE HCL [Concomitant]
  5. ADVAIR DISKUS 100/50 [Concomitant]
  6. REGLAN [Concomitant]
  7. CELEBREX [Concomitant]

REACTIONS (11)
  - DIFFUSE ALVEOLAR DAMAGE [None]
  - DIZZINESS POSTURAL [None]
  - DRUG HYPERSENSITIVITY [None]
  - HAEMOPTYSIS [None]
  - INFECTION [None]
  - INTERSTITIAL LUNG DISEASE [None]
  - NEOPLASM PROGRESSION [None]
  - PULMONARY FIBROSIS [None]
  - RADIATION PNEUMONITIS [None]
  - RESPIRATORY FAILURE [None]
  - THERAPY NON-RESPONDER [None]
